FAERS Safety Report 21697549 (Version 1)
Quarter: 2022Q4

REPORT INFORMATION
  Report Type: Spontaneous
  Country: US (occurrence: US)
  Receive Date: 20221208
  Receipt Date: 20221208
  Transmission Date: 20230113
  Serious: No
  Sender: FDA-Public Use
  Company Number: US-SA-SAC20221206000109

PATIENT
  Sex: Female
  Weight: 52.16 kg

DRUGS (7)
  1. DUPIXENT [Suspect]
     Active Substance: DUPILUMAB
     Dosage: 300MG, QOW
     Route: 058
     Dates: start: 20221013
  2. NYSTATIN [Concomitant]
     Active Substance: NYSTATIN
     Route: 048
  3. BREO ELLIPTA [Concomitant]
     Active Substance: FLUTICASONE FUROATE\VILANTEROL TRIFENATATE
  4. STOOL SOFTENER (DOCUSATE) [Concomitant]
     Active Substance: DOCUSATE
  5. VITAMINS NOS [Concomitant]
     Active Substance: VITAMINS
  6. FLUCELVAX QUAD [Concomitant]
  7. MODERNA COVID-19 VACCINE [Concomitant]
     Active Substance: ELASOMERAN

REACTIONS (3)
  - Candida infection [Not Recovered/Not Resolved]
  - Asymptomatic COVID-19 [Not Recovered/Not Resolved]
  - Weight decreased [Unknown]
